FAERS Safety Report 7402019-5 (Version None)
Quarter: 2011Q2

REPORT INFORMATION
  Report Type: 
  Country: None (occurrence: None)
  Receive Date: 20110408
  Receipt Date: 20091119
  Transmission Date: 20111010
  Serious: Yes (Other)
  Sender: FDA-Public Use
  Company Number: US-BAYER-200939996NA

PATIENT
  Sex: Male
  Weight: 94 kg

DRUGS (28)
  1. DIGOXIN [Concomitant]
     Dosage: 0.125 MG, QD
     Route: 048
  2. COZAAR [Concomitant]
     Dosage: 50 MG, QD
     Route: 048
  3. TRASYLOL [Suspect]
     Indication: AORTIC VALVE REPLACEMENT
     Dosage: INITIAL DOSE
     Route: 042
     Dates: start: 20011127, end: 20011127
  4. TRASYLOL [Suspect]
     Dosage: 27 ML/ H
     Route: 042
     Dates: start: 20011127, end: 20011127
  5. COUMADIN [Concomitant]
     Dosage: UNK
     Dates: start: 20011204
  6. ACETAMINOPHEN [Concomitant]
     Dosage: 650 MG, UNK
  7. HYTRIN [Concomitant]
     Dosage: 2 MG, QD
     Route: 048
  8. RED BLOOD CELLS [Concomitant]
     Dosage: 4 U, UNK
     Dates: start: 20011127
  9. NIPRIDE [Concomitant]
     Dosage: INFUSE
     Dates: start: 20011127
  10. COLACE [Concomitant]
     Dosage: 100 MG, BID
     Route: 048
  11. CEFAZOLIN [Concomitant]
     Dosage: DURING SURGERY
     Route: 042
  12. DOBUTAMINE HCL [Concomitant]
     Dosage: INFUSE
     Dates: start: 20011127
  13. CARDIZEM [Concomitant]
     Dosage: 5 MG, UNK
     Route: 042
     Dates: start: 20011130, end: 20011202
  14. DOPAMINE [Concomitant]
     Dosage: UNK
     Dates: start: 20011130
  15. AMIODARONE [Concomitant]
     Dosage: UNK
     Dates: start: 20011203
  16. PREVACID [Concomitant]
     Dosage: DAILY DOSE 30 MG
     Route: 048
  17. NIFEREX [Concomitant]
     Dosage: DAILY DOSE 50 MG
     Route: 048
  18. TRASYLOL [Suspect]
     Dosage: INITIAL DOSE PUMP PRIME
     Route: 042
     Dates: start: 20011127, end: 20011127
  19. TRASYLOL [Suspect]
     Dosage: 100 ML, LOADING DOSE
     Route: 042
     Dates: start: 20011127, end: 20011127
  20. HEPARIN [Concomitant]
     Dosage: DURING SURGERY
     Route: 042
  21. HEPARIN [Concomitant]
     Dosage: UNK
     Route: 042
     Dates: start: 20011201
  22. CORLOPAM [Concomitant]
     Indication: RENAL VESSEL DISORDER
     Dosage: UNK
     Dates: start: 20011127, end: 20011130
  23. LASIX [Concomitant]
     Dosage: 40 MG, BID
     Route: 048
  24. COUMADIN [Concomitant]
     Dosage: 2 MG, QD
     Route: 048
  25. PLATELETS [Concomitant]
     Dosage: 20 U, UNK
     Dates: start: 20011127
  26. TOPROL-XL [Concomitant]
     Dosage: 50 MG, QD
     Route: 048
  27. HYDRALAZINE [Concomitant]
     Dosage: DURING SURGERY
     Route: 042
  28. FRESH FROZEN PLASMA [Concomitant]
     Dosage: 4 U, UNK
     Dates: start: 20011127

REACTIONS (11)
  - EMOTIONAL DISTRESS [None]
  - INJURY [None]
  - RENAL FAILURE [None]
  - UNEVALUABLE EVENT [None]
  - FEAR [None]
  - ANHEDONIA [None]
  - RENAL IMPAIRMENT [None]
  - PAIN [None]
  - STRESS [None]
  - RENAL INJURY [None]
  - ANXIETY [None]
